FAERS Safety Report 9596624 (Version 2)
Quarter: 2013Q4

REPORT INFORMATION
  Report Type: Report from Study
  Country: BR (occurrence: BR)
  Receive Date: 20131004
  Receipt Date: 20131209
  Transmission Date: 20140711
  Serious: Yes (Death, Other)
  Sender: FDA-Public Use
  Company Number: PHHY2013BR110614

PATIENT
  Sex: Female
  Weight: 40 kg

DRUGS (4)
  1. EXELON PATCH [Suspect]
     Indication: DEMENTIA ALZHEIMER^S TYPE
     Dosage: 4.6 MG (5 CM), A DAY
     Route: 062
     Dates: start: 201304, end: 201306
  2. EXELON PATCH [Suspect]
     Dosage: 13.3 MG, DAILY
     Route: 062
     Dates: start: 201306
  3. VALSARTAN [Concomitant]
     Dosage: UNK UKN, UNK
  4. SERTRALINE [Concomitant]
     Dosage: UNK UKN, UNK
     Dates: start: 201211

REACTIONS (7)
  - Bronchopneumonia [Fatal]
  - Dyspnoea [Fatal]
  - Convulsion [Fatal]
  - Respiratory rate increased [Fatal]
  - General physical condition abnormal [Unknown]
  - Agitation [Unknown]
  - Drug intolerance [Unknown]
